FAERS Safety Report 16472853 (Version 1)
Quarter: 2019Q2

REPORT INFORMATION
  Report Type: Spontaneous
  Country: US (occurrence: US)
  Receive Date: 20190515
  Receipt Date: 20190515
  Transmission Date: 20190711
  Serious: Yes (Hospitalization)
  Sender: FDA-Public Use
  Company Number: None

PATIENT
  Age: 27 Year
  Sex: Female

DRUGS (1)
  1. GLATIRAMER 40 MG [Suspect]
     Active Substance: GLATIRAMER
     Indication: MULTIPLE SCLEROSIS
     Route: 058

REACTIONS (4)
  - Decreased appetite [None]
  - Confusional state [None]
  - Balance disorder [None]
  - Blindness [None]

NARRATIVE: CASE EVENT DATE: 20190511
